FAERS Safety Report 25151844 (Version 1)
Quarter: 2025Q2

REPORT INFORMATION
  Report Type: Report from Study
  Country: ES (occurrence: ES)
  Receive Date: 20250402
  Receipt Date: 20250402
  Transmission Date: 20250716
  Serious: Yes (Hospitalization)
  Sender: PFIZER
  Company Number: ES-PFIZER INC-202500066349

PATIENT

DRUGS (2)
  1. ENCORAFENIB [Suspect]
     Active Substance: ENCORAFENIB
     Indication: Metastatic malignant melanoma
     Dosage: 450 MG, DAILY
     Route: 048
  2. BINIMETINIB [Suspect]
     Active Substance: BINIMETINIB
     Indication: Metastatic malignant melanoma
     Dosage: 45 MG, 2X/DAY
     Route: 048

REACTIONS (2)
  - Hyponatraemia [Unknown]
  - Diarrhoea [Unknown]
